FAERS Safety Report 17437124 (Version 18)
Quarter: 2020Q2

REPORT INFORMATION
  Report Type: Report from Study
  Country: PL (occurrence: PL)
  Receive Date: 20200219
  Receipt Date: 20200624
  Transmission Date: 20200713
  Serious: Yes (Death, Hospitalization, Other)
  Sender: FDA-Public Use
  Company Number: PL-PFIZER INC-2020070807

PATIENT
  Age: 66 Year
  Sex: Male
  Weight: 60 kg

DRUGS (15)
  1. DOXYCYCLINUM [DOXYCYCLINE] [Concomitant]
     Dosage: 100 MG, 1X/DAY, 1-0-0 P.O.
     Route: 048
  2. TAFAMIDIS [Suspect]
     Active Substance: TAFAMIDIS MEGLUMINE
     Indication: NEUROPATHY PERIPHERAL
     Dosage: 61 MG, 1X/DAY
     Route: 048
     Dates: start: 20191216, end: 20200206
  3. ELIQUIS [Suspect]
     Active Substance: APIXABAN
     Indication: THROMBOCYTOPENIA
  4. ESSENTIALE FORTE [Concomitant]
     Dosage: 2 DOSAGE FORM, 3X/DAY, 2-2-2 P.O.
     Route: 048
  5. ELIQUIS [Suspect]
     Active Substance: APIXABAN
     Indication: CHRONIC KIDNEY DISEASE
  6. GLICLADA [Concomitant]
     Active Substance: GLICLAZIDE
     Dosage: 30 MG, 1X/DAY, 1-0-0 P.O.
     Route: 048
  7. HYPLAFIN [Concomitant]
     Dosage: 5 MG, 1X/DAY, 1-0-0 P.O.
     Route: 048
  8. ELIQUIS [Suspect]
     Active Substance: APIXABAN
     Indication: ATRIAL FIBRILLATION
     Dosage: 2.5 MG, 2X/DAY 1-0-1 P.O
     Route: 048
  9. VENTOLIN [Concomitant]
     Active Substance: ALBUTEROL SULFATE
     Dosage: 200 UG, 3X/DAY, INHALATION ACCORDING TO THE PULMONOLOGIST RECOMMENDATION (3X2)
  10. TAFAMIDIS [Suspect]
     Active Substance: TAFAMIDIS MEGLUMINE
     Indication: CARDIAC AMYLOIDOSIS
  11. PANPRAZOX [Concomitant]
     Dosage: 40 MG, 1X/DAY, 1-0-0 P.O.
     Route: 048
  12. OPACORDEN [Concomitant]
     Active Substance: AMIODARONE HYDROCHLORIDE
     Dosage: 200 MG, 1X/DAY, 1-0-0 P.O.
     Route: 048
  13. POLPRIL [Concomitant]
     Active Substance: RAMIPRIL
     Dosage: 2.5 MG, 1X/DAY, 1-0-0 P.O.
     Route: 048
  14. PROBIOTICS [Concomitant]
     Active Substance: PROBIOTICS NOS
     Dosage: 1 DOSAGE FORM, BID, 1-0-1 P.O.
     Route: 048
  15. MAGLEK B6 [Concomitant]
     Dosage: UNK UNK, 2X/DAY, 1-0-1 P.O.
     Route: 048

REACTIONS (3)
  - Intestinal obstruction [Fatal]
  - Cardiac arrest [Fatal]
  - Haematuria [Recovered/Resolved]

NARRATIVE: CASE EVENT DATE: 20200207
